FAERS Safety Report 25739338 (Version 1)
Quarter: 2025Q3

REPORT INFORMATION
  Report Type: Other
  Country: EU (occurrence: EU)
  Receive Date: 20250829
  Receipt Date: 20250829
  Transmission Date: 20251020
  Serious: Yes (Other)
  Sender: RENATA LIMITED
  Company Number: EU-Renata Limited-2183453

PATIENT
  Age: 74 Year
  Sex: Male

DRUGS (8)
  1. METOPROLOL TARTRATE [Suspect]
     Active Substance: METOPROLOL TARTRATE
     Indication: Hypertension
  2. METFORMIN [Suspect]
     Active Substance: METFORMIN HYDROCHLORIDE
  3. THIOCTIC ACID [Concomitant]
     Active Substance: THIOCTIC ACID
  4. PENTOXIFYLLINE [Concomitant]
     Active Substance: PENTOXIFYLLINE
  5. MOXONIDINE [Suspect]
     Active Substance: MOXONIDINE
  6. NIFEDIPINE [Suspect]
     Active Substance: NIFEDIPINE
  7. LOSARTAN POTASSIUM AND HYDROCHLOROTHIAZIDE [Suspect]
     Active Substance: HYDROCHLOROTHIAZIDE\LOSARTAN POTASSIUM
  8. GLIMEPIRIDE [Suspect]
     Active Substance: GLIMEPIRIDE

REACTIONS (2)
  - Basal cell carcinoma [Unknown]
  - Wrong technique in product usage process [Unknown]
